FAERS Safety Report 4266228-9 (Version None)
Quarter: 2004Q1

REPORT INFORMATION
  Report Type: 
  Country: None (occurrence: None)
  Receive Date: 20040106
  Receipt Date: 20031219
  Transmission Date: 20041129
  Serious: Yes (Other)
  Sender: FDA-Public Use
  Company Number: 2003-00804FE

PATIENT
  Age: 52 Year
  Sex: Male

DRUGS (3)
  1. PENTASA [Suspect]
     Indication: COLITIS ULCERATIVE
     Dosage: 3000 MG ORALLY
     Route: 048
     Dates: start: 19960101, end: 20031025
  2. GANCICLOVIR [Concomitant]
  3. PREDNISOLONE [Concomitant]

REACTIONS (3)
  - INTERSTITIAL LUNG DISEASE [None]
  - PNEUMONIA VIRAL [None]
  - PYREXIA [None]
